FAERS Safety Report 4778120-1 (Version None)
Quarter: 2005Q3

REPORT INFORMATION
  Report Type: 
  Country: None (occurrence: None)
  Receive Date: 20050926
  Receipt Date: 20050919
  Transmission Date: 20060218
  Serious: Yes (Disabling)
  Sender: FDA-Public Use
  Company Number: PHNR2005AU01421

PATIENT
  Age: 54 Year
  Sex: Female

DRUGS (1)
  1. ZOMETA [Suspect]
     Indication: METASTASES TO BONE
     Dosage: 4 MG, QMO
     Dates: start: 20031030, end: 20050428

REACTIONS (3)
  - ASEPTIC NECROSIS BONE [None]
  - OSTEONECROSIS [None]
  - PAIN IN JAW [None]
